FAERS Safety Report 4464519-X (Version None)
Quarter: 2004Q3

REPORT INFORMATION
  Report Type: 
  Country: None (occurrence: None)
  Receive Date: 20040929
  Receipt Date: 20040913
  Transmission Date: 20050211
  Serious: Yes (Hospitalization)
  Sender: FDA-Public Use
  Company Number: 2004-DE-04819DE

PATIENT
  Age: 55 Year
  Sex: Female

DRUGS (2)
  1. MICARDIS HCT [Suspect]
     Dosage: 280 MG (40 MG, 1X7 TABLETS); ONCE
     Route: 048
  2. TRICODEIN (TA) [Suspect]
     Dosage: 115 MG (57.5 MG,1X2 TABLETS); ONCE
     Route: 048

REACTIONS (4)
  - APATHY [None]
  - DRUG ABUSER [None]
  - INTENTIONAL OVERDOSE [None]
  - SUICIDE ATTEMPT [None]
